FAERS Safety Report 5341125-6 (Version None)
Quarter: 2007Q2

REPORT INFORMATION
  Report Type: 
  Country: None (occurrence: None)
  Receive Date: 20070531
  Receipt Date: 20070523
  Transmission Date: 20071010
  Serious: Yes (Death, Hospitalization)
  Sender: FDA-Public Use
  Company Number: US-AMGEN-US082128

PATIENT
  Sex: Male

DRUGS (4)
  1. ETANERCEPT [Suspect]
     Indication: PSORIASIS
     Route: 058
     Dates: start: 20040524, end: 20040624
  2. KENALOG [Suspect]
     Route: 030
     Dates: start: 20040628
  3. PREDNISONE TAB [Suspect]
     Route: 048
     Dates: start: 20040628
  4. TORADOL [Concomitant]

REACTIONS (3)
  - BACTERIAL SEPSIS [None]
  - IMMUNOSUPPRESSION [None]
  - PNEUMONIA [None]
